FAERS Safety Report 4627068-1 (Version None)
Quarter: 2005Q2

REPORT INFORMATION
  Report Type: 
  Country: None (occurrence: None)
  Receive Date: 20050405
  Receipt Date: 20041019
  Transmission Date: 20051028
  Serious: Yes (Other)
  Sender: FDA-Public Use
  Company Number: PHNU2004DE03555

PATIENT
  Age: 25 Year
  Sex: Male

DRUGS (1)
  1. CLOZARIL [Suspect]
     Indication: SCHIZOPHRENIA
     Dosage: UP TO 900 MG/DAY
     Route: 048
     Dates: start: 20040501

REACTIONS (8)
  - ALCOHOLISM [None]
  - BLOOD PRESSURE INCREASED [None]
  - EOSINOPHIL PERCENTAGE INCREASED [None]
  - GAMMA-GLUTAMYLTRANSFERASE INCREASED [None]
  - SALIVARY HYPERSECRETION [None]
  - SOMNOLENCE [None]
  - TACHYCARDIA [None]
  - WEIGHT INCREASED [None]
